FAERS Safety Report 7691660-0 (Version None)
Quarter: 2011Q3

REPORT INFORMATION
  Report Type: 
  Country: None (occurrence: None)
  Receive Date: 20110818
  Receipt Date: 20110808
  Transmission Date: 20111222
  Serious: Yes (Other)
  Sender: FDA-Public Use
  Company Number: US-KINGPHARMUSA00001-K201100904

PATIENT
  Sex: Female
  Weight: 41.27 kg

DRUGS (11)
  1. FLECTOR [Suspect]
     Indication: BURSITIS
     Dosage: UNK PATCH, UNK
     Route: 061
     Dates: start: 20110802, end: 20110805
  2. FUROSEMIDE [Concomitant]
     Dosage: UNK
  3. RESTASIS [Concomitant]
     Dosage: UNK
  4. FLECTOR [Suspect]
     Indication: MYALGIA
  5. LACTULOSE [Concomitant]
     Dosage: UNK
  6. FLECTOR [Suspect]
     Indication: ROTATOR CUFF SYNDROME
     Dosage: UNK PATCH, UNK
     Route: 061
     Dates: start: 20080601, end: 20090101
  7. GRISEOFULVIN [Concomitant]
  8. RECLAST [Concomitant]
     Dosage: UNK
  9. TAMOXIFEN CITRATE [Concomitant]
     Dosage: UNK
  10. DEXLANSOPRAZOLE [Concomitant]
     Dosage: UNK
  11. IBUPROFEN [Concomitant]
     Dosage: UNK

REACTIONS (5)
  - THROMBOSIS [None]
  - BREAST INFECTION [None]
  - LYMPHOEDEMA [None]
  - BREAST CANCER [None]
  - BREAST CYST [None]
